FAERS Safety Report 21961907 (Version 2)
Quarter: 2023Q1

REPORT INFORMATION
  Report Type: Spontaneous
  Country: GB (occurrence: GB)
  Receive Date: 20230207
  Receipt Date: 20230209
  Transmission Date: 20230418
  Serious: Yes (Other)
  Sender: FDA-Public Use
  Company Number: GB-MYLANLABS-2023M1008371

PATIENT

DRUGS (13)
  1. DOLUTEGRAVIR SODIUM [Suspect]
     Active Substance: DOLUTEGRAVIR SODIUM
     Indication: Product used for unknown indication
     Dosage: 100 MILLIGRAM (2 X DOLUTEGRAVIR 50MG)
     Route: 065
     Dates: start: 20230122
  2. DOLUTEGRAVIR SODIUM [Suspect]
     Active Substance: DOLUTEGRAVIR SODIUM
     Dosage: 50 MG (50MG ON)
     Route: 065
  3. RILPIVIRINE [Suspect]
     Active Substance: RILPIVIRINE
     Indication: Product used for unknown indication
     Dosage: 50 MG  (2 X RILPIVIRINE)
     Route: 065
     Dates: start: 20230122
  4. RILPIVIRINE [Suspect]
     Active Substance: RILPIVIRINE
     Dosage: 25 MG (25MG ON)
     Route: 065
  5. CLOZARIL [Suspect]
     Active Substance: CLOZAPINE
     Indication: Schizoaffective disorder
     Dosage: UNK (50MG,300MG)
     Route: 048
     Dates: start: 20181018
  6. CLOZARIL [Suspect]
     Active Substance: CLOZAPINE
     Dosage: 600 MG  (2 X CLOZAPINE 300MG (600MG TOTAL))
     Route: 065
     Dates: start: 20230122
  7. SCOPOLAMINE HYDROBROMIDE [Suspect]
     Active Substance: SCOPOLAMINE HYDROBROMIDE
     Indication: Product used for unknown indication
     Dosage: 600 MG (2 X HYOSCINE HYDROBROMIDE 300MICROGRAMS)
     Route: 065
     Dates: start: 20230122
  8. SCOPOLAMINE HYDROBROMIDE [Suspect]
     Active Substance: SCOPOLAMINE HYDROBROMIDE
     Dosage: 300 MG, BID
     Route: 065
  9. LITHIUM [Suspect]
     Active Substance: LITHIUM
     Indication: Product used for unknown indication
     Dosage: 2 G (2 X LITHIUM 1GRAM)
     Route: 065
     Dates: start: 20230122
  10. LITHIUM [Suspect]
     Active Substance: LITHIUM
     Dosage: 1 G (1 GRAM ON)
     Route: 065
  11. VALPROATE SODIUM [Suspect]
     Active Substance: VALPROATE SODIUM
     Indication: Product used for unknown indication
     Dosage: UNK (500MG OM, 1GRAM ON)
     Route: 065
  12. VALPROATE SODIUM [Suspect]
     Active Substance: VALPROATE SODIUM
     Dosage: 2 G ((2 X SODIUM VALPROATE 1GM))
     Route: 065
     Dates: start: 20230122
  13. CHOLECALCIFEROL [Concomitant]
     Active Substance: CHOLECALCIFEROL
     Indication: Product used for unknown indication
     Dosage: 1000 IU, QD
     Route: 065

REACTIONS (5)
  - Antipsychotic drug level increased [Unknown]
  - Somnolence [Unknown]
  - Extra dose administered [Unknown]
  - Contraindicated product administered [Unknown]
  - Product use in unapproved indication [Unknown]

NARRATIVE: CASE EVENT DATE: 20230122
